FAERS Safety Report 5333866-1 (Version None)
Quarter: 2007Q1

REPORT INFORMATION
  Report Type: 
  Country: None (occurrence: None)
  Receive Date: 20070306
  Receipt Date: 20060822
  Transmission Date: 20070707
  Serious: Yes (Other)
  Sender: FDA-Public Use
  Company Number: A03200605295

PATIENT
  Sex: Male

DRUGS (3)
  1. PLAVIX [Suspect]
     Indication: ANGIOGRAM
     Dosage: 75 MG - ORAL
     Route: 048
  2. PLAVIX [Suspect]
     Indication: PERIPHERAL VASCULAR DISORDER
     Dosage: 75 MG - ORAL
     Route: 048
  3. PLAVIX [Suspect]
     Indication: STENT PLACEMENT
     Dosage: 75 MG - ORAL
     Route: 048

REACTIONS (2)
  - COLITIS [None]
  - HAEMORRHAGE [None]
